FAERS Safety Report 10097314 (Version 1)
Quarter: 2014Q2

REPORT INFORMATION
  Report Type: Spontaneous
  Country: US (occurrence: US)
  Receive Date: 20140423
  Receipt Date: 20140423
  Transmission Date: 20141212
  Serious: No
  Sender: FDA-Public Use
  Company Number: US-009507513-1404USA008906

PATIENT
  Age: 43 Year
  Sex: Female
  Weight: 68.93 kg

DRUGS (4)
  1. DESOGEN [Suspect]
     Indication: CONTRACEPTION
     Route: 048
  2. DESOGEN [Suspect]
     Indication: MENSTRUAL CYCLE MANAGEMENT
  3. YASMIN [Suspect]
  4. HORMONAL CONTRACEPTIVES (UNSPECIFIED) [Suspect]

REACTIONS (3)
  - Menstrual cycle management [Unknown]
  - Anxiety [Recovering/Resolving]
  - Off label use [Unknown]
